FAERS Safety Report 7009356 (Version 3)
Quarter: 2014Q3

REPORT INFORMATION
  Report Type: Spontaneous
  Country: US (occurrence: None)
  Receive Date: 20090526
  Receipt Date: 20140916
  Transmission Date: 20150326
  Serious: Yes (Hospitalization, Other)
  Sender: FDA-Public Use
  Company Number: 2009S1004127

PATIENT
  Age: 73 Year
  Sex: Female
  Weight: 73 kg

DRUGS (6)
  1. DIOVAN [Concomitant]
     Active Substance: VALSARTAN
  2. TRIAMTERENE AND HYDROCHLOROTHIAZIDE [Concomitant]
     Active Substance: HYDROCHLOROTHIAZIDE\TRIAMTERENE
  3. FLONASE [Concomitant]
     Active Substance: FLUTICASONE PROPIONATE
  4. PHOSPHO-SODA [Suspect]
     Active Substance: SODIUM PHOSPHATE, DIBASIC\SODIUM PHOSPHATE, MONOBASIC
     Indication: COLONOSCOPY
     Dosage: TOTAL, ORAL
     Route: 048
     Dates: start: 20070613
  5. SPIRIVA [Concomitant]
     Active Substance: TIOTROPIUM BROMIDE MONOHYDRATE
  6. XOPENEX [Concomitant]
     Active Substance: LEVALBUTEROL HYDROCHLORIDE

REACTIONS (20)
  - Abdominal distension [None]
  - Renal failure acute [None]
  - Nephrogenic anaemia [None]
  - Renal failure [None]
  - Atrial fibrillation [None]
  - Diarrhoea [None]
  - Dry mouth [None]
  - Dry skin [None]
  - Renal failure chronic [None]
  - Dyspnoea [None]
  - Asthenia [None]
  - Hypokalaemia [None]
  - Hypertension [None]
  - Renal tubular necrosis [None]
  - Hyperparathyroidism secondary [None]
  - Flatulence [None]
  - Dehydration [None]
  - Prerenal failure [None]
  - Cholelithiasis [None]
  - Acute phosphate nephropathy [None]

NARRATIVE: CASE EVENT DATE: 200706
